FAERS Safety Report 8301688-5 (Version None)
Quarter: 2012Q2

REPORT INFORMATION
  Report Type: 
  Country: None (occurrence: None)
  Receive Date: 20120420
  Receipt Date: 20120410
  Transmission Date: 20120825
  Serious: Yes (Other)
  Sender: FDA-Public Use
  Company Number: US-VERTEX PHARMACEUTICALS INC.-AE-2012-003694

PATIENT
  Sex: Female

DRUGS (4)
  1. TYLENOL (CAPLET) [Concomitant]
  2. PEG-INTRON [Concomitant]
     Indication: HEPATITIS C
     Route: 058
     Dates: start: 20110617, end: 20111111
  3. INCIVEK [Suspect]
     Indication: HEPATITIS C
     Route: 048
     Dates: start: 20110617, end: 20110909
  4. RIBAVIRIN [Concomitant]
     Indication: HEPATITIS C
     Dates: start: 20110617, end: 20111111

REACTIONS (1)
  - PORPHYRIA NON-ACUTE [None]
